FAERS Safety Report 17761920 (Version 1)
Quarter: 2020Q2

REPORT INFORMATION
  Report Type: Spontaneous
  Country: MX (occurrence: MX)
  Receive Date: 20200508
  Receipt Date: 20200508
  Transmission Date: 20200714
  Serious: Yes (Death, Hospitalization)
  Sender: FDA-Public Use
  Company Number: MX-B.I. PHARMACEUTICALS,INC./RIDGEFIELD-2020-BI-010931

PATIENT
  Age: 78 Year
  Sex: Female

DRUGS (2)
  1. INSULIN [Concomitant]
     Active Substance: INSULIN NOS
     Indication: DIABETES MELLITUS
     Route: 065
  2. PRADAXAR [Suspect]
     Active Substance: DABIGATRAN ETEXILATE MESYLATE
     Indication: FEMUR FRACTURE
     Route: 048

REACTIONS (6)
  - Melaena [Unknown]
  - Urosepsis [Fatal]
  - Renal disorder [Fatal]
  - Anaemia [Fatal]
  - Haematoma [Unknown]
  - Haematuria [Unknown]

NARRATIVE: CASE EVENT DATE: 20200216
